FAERS Safety Report 8984446 (Version 1)
Quarter: 2012Q4

REPORT INFORMATION
  Report Type: 
  Country: US (occurrence: US)
  Receive Date: 20121225
  Receipt Date: 20121225
  Transmission Date: 20130627
  Serious: Yes (Hospitalization, Other)
  Sender: FDA-Public Use
  Company Number: US-SANOFI-AVENTIS-2012SA092444

PATIENT
  Age: 84 Year
  Sex: Female

DRUGS (33)
  1. LASIX [Suspect]
     Route: 048
  2. GAMUNEX [Suspect]
     Indication: CHRONIC INFLAMMATORY DEMYELINATING POLYRADICULONEUROPATHY
     Route: 042
     Dates: start: 20120808
  3. GAMUNEX [Suspect]
     Indication: CHRONIC INFLAMMATORY DEMYELINATING POLYRADICULONEUROPATHY
     Route: 042
     Dates: start: 20120902
  4. GAMUNEX [Suspect]
     Indication: CHRONIC INFLAMMATORY DEMYELINATING POLYRADICULONEUROPATHY
     Route: 042
     Dates: start: 20121007
  5. ADVAIR [Concomitant]
  6. MYLANTA [Concomitant]
  7. CALCIUM ASCORBATE [Concomitant]
  8. ASPIRIN [Concomitant]
     Dates: start: 20120422
  9. ATORVASTATIN CALCIUM [Concomitant]
     Dates: start: 20120525
  10. ESTROGENS CONJUGATED [Concomitant]
  11. EPINASTINE HYDROCHLORIDE [Concomitant]
     Dates: start: 20120702
  12. VITAMIN D [Concomitant]
  13. INEXIUM [Concomitant]
     Dates: start: 20120427
  14. ESTRADIOL [Concomitant]
     Dates: start: 20120531
  15. FISH OIL [Concomitant]
  16. SYNTHROID [Concomitant]
     Dates: start: 20120523
  17. LIDODERM [Concomitant]
     Dates: start: 20120628
  18. ATIVAN [Concomitant]
     Dates: start: 20120523
  19. LYSINE [Concomitant]
  20. SOLUMEDROL [Concomitant]
  21. LOPRESSOR [Concomitant]
     Dates: start: 20120629
  22. THERAGRAN [Concomitant]
  23. NITROLINGUAL [Concomitant]
     Dates: start: 20111201
  24. PERCOCET [Concomitant]
     Dates: start: 20120523
  25. MIRALAX [Concomitant]
     Dates: start: 20120416
  26. POTASSIUM CHLORIDE [Concomitant]
     Dates: start: 20120413
  27. SALBUTAMOL SULFATE [Concomitant]
     Dates: start: 20120418
  28. DOCUSATE SODIUM [Concomitant]
  29. BACTRIM [Concomitant]
     Dates: start: 20120427
  30. VITAMIN E [Concomitant]
  31. ZINC GLUCONATE [Concomitant]
  32. ULTRAM [Concomitant]
  33. IMURAN [Concomitant]
     Dates: start: 20120310

REACTIONS (2)
  - Urinary tract infection [Unknown]
  - Renal failure acute [Unknown]
